FAERS Safety Report 4992715-1 (Version None)
Quarter: 2006Q1

REPORT INFORMATION
  Report Type: 
  Country: None (occurrence: None)
  Receive Date: 20060315
  Receipt Date: 20050607
  Transmission Date: 20060701
  Serious: Yes (Other)
  Sender: FDA-Public Use
  Company Number: USA050699916

PATIENT
  Sex: Female

DRUGS (2)
  1. GEMZAR [Suspect]
     Indication: OVARIAN CANCER
     Dates: start: 20050101
  2. CISPLATIN [Concomitant]

REACTIONS (1)
  - PLATELET COUNT DECREASED [None]
